FAERS Safety Report 16777176 (Version 1)
Quarter: 2019Q4

REPORT INFORMATION
  Report Type: Spontaneous
  Country: US (occurrence: US)
  Receive Date: 20190905
  Receipt Date: 20190905
  Transmission Date: 20200122
  Serious: No
  Sender: FDA-Public Use
  Company Number: None

PATIENT
  Sex: Female

DRUGS (2)
  1. TREMFYA [Concomitant]
     Active Substance: GUSELKUMAB
     Dates: start: 20190107
  2. TREMFYA [Suspect]
     Active Substance: GUSELKUMAB
     Dosage: 100 MG/ML SUBCUTANEOUS EVERY 8 WEEKS
     Route: 058
     Dates: start: 20190107

REACTIONS (1)
  - Condition aggravated [None]

NARRATIVE: CASE EVENT DATE: 20190725
